FAERS Safety Report 18582779 (Version 1)
Quarter: 2020Q4

REPORT INFORMATION
  Report Type: Report from Study
  Country: CA (occurrence: CA)
  Receive Date: 20201205
  Receipt Date: 20201205
  Transmission Date: 20210114
  Serious: Yes (Death)
  Sender: FDA-Public Use
  Company Number: NVSC2019CA033836

PATIENT
  Sex: Female

DRUGS (1)
  1. TYKERB [Suspect]
     Active Substance: LAPATINIB DITOSYLATE
     Indication: BREAST CANCER METASTATIC
     Dosage: 1250 MG
     Route: 048
     Dates: start: 20191019, end: 201911

REACTIONS (6)
  - Diarrhoea [Recovered/Resolved]
  - Nausea [Unknown]
  - Constipation [Unknown]
  - Product use complaint [Unknown]
  - Fatigue [Unknown]
  - Death [Fatal]
